FAERS Safety Report 11872145 (Version 6)
Quarter: 2016Q1

REPORT INFORMATION
  Report Type: Report from Study
  Country: DE (occurrence: DE)
  Receive Date: 20151228
  Receipt Date: 20160321
  Transmission Date: 20160526
  Serious: Yes (Life-Threatening, Hospitalization)
  Sender: FDA-Public Use
  Company Number: DE-PFIZER INC-2015461440

PATIENT
  Age: 45 Year
  Sex: Female
  Weight: 75 kg

DRUGS (8)
  1. IDARUBICIN [Suspect]
     Active Substance: IDARUBICIN
     Indication: ACUTE MYELOID LEUKAEMIA
     Dosage: 23 MG, DAILY
     Dates: start: 20151208, end: 20151212
  2. ATRA [Suspect]
     Active Substance: TRETINOIN
     Indication: ACUTE MYELOID LEUKAEMIA
     Dosage: 90 MG, DAILY
     Dates: start: 20151213, end: 20151215
  3. VANCOMYCIN [Concomitant]
     Active Substance: VANCOMYCIN
     Indication: INFECTION
     Dosage: 2 G, DAILY
     Route: 042
     Dates: start: 20151213, end: 20151217
  4. GEMTUZUMAB OZOGAMICIN [Suspect]
     Active Substance: GEMTUZUMAB OZOGAMICIN
     Indication: ACUTE MYELOID LEUKAEMIA
     Dosage: 5.8 MG, UNK
     Dates: start: 20151206, end: 20151208
  5. ETOPOSIDE. [Suspect]
     Active Substance: ETOPOSIDE
     Indication: ACUTE MYELOID LEUKAEMIA
     Dosage: 193 MG, UNK
     Dates: start: 20151208, end: 20151210
  6. MEROPENEM. [Concomitant]
     Active Substance: MEROPENEM
     Indication: INFECTION
     Dosage: 3 G, UNK
     Route: 042
     Dates: start: 20151213, end: 20160115
  7. CYTARABINE. [Suspect]
     Active Substance: CYTARABINE
     Indication: ACUTE MYELOID LEUKAEMIA
     Dosage: 193 MG, DAILY
     Dates: start: 20151206, end: 20151214
  8. METRONIDAZOL /00012501/ [Concomitant]
     Active Substance: METRONIDAZOLE
     Indication: INFECTION
     Dosage: 500 MG, 3X/DAY
     Route: 042
     Dates: start: 20151213, end: 20160113

REACTIONS (2)
  - Sepsis [Recovered/Resolved]
  - Colitis [Recovered/Resolved]

NARRATIVE: CASE EVENT DATE: 20151217
